FAERS Safety Report 16004981 (Version 1)
Quarter: 2019Q1

REPORT INFORMATION
  Report Type: Report from Study
  Country: CO (occurrence: CO)
  Receive Date: 20190226
  Receipt Date: 20190226
  Transmission Date: 20190418
  Serious: Yes (Hospitalization)
  Sender: FDA-Public Use
  Company Number: PHHY2017CO068444

PATIENT
  Age: 58 Year
  Sex: Male

DRUGS (1)
  1. ENTRESTO [Suspect]
     Active Substance: SACUBITRIL\VALSARTAN
     Indication: CARDIAC FAILURE CHRONIC
     Dosage: 50 MG, Q12H
     Route: 048
     Dates: start: 20170318

REACTIONS (6)
  - Vomiting [Unknown]
  - Headache [Unknown]
  - Chest pain [Unknown]
  - Cough [Unknown]
  - Syncope [Unknown]
  - Back pain [Unknown]

NARRATIVE: CASE EVENT DATE: 20170702
